FAERS Safety Report 6678109-1 (Version None)
Quarter: 2010Q2

REPORT INFORMATION
  Report Type: 
  Country: None (occurrence: None)
  Receive Date: 20100412
  Receipt Date: 20100405
  Transmission Date: 20101027
  Serious: Yes (Death, Hospitalization)
  Sender: FDA-Public Use
  Company Number: NL-ROCHE-696314

PATIENT

DRUGS (7)
  1. MYCOPHENOLATE MOFETIL [Suspect]
     Route: 065
  2. TACROLIMUS [Suspect]
     Dosage: TARGET LEVEL APPROXIMATETLY 10 NG/ML
     Route: 065
  3. PREDNISOLONE [Suspect]
     Dosage: DOSE: 15-20 MG
     Route: 065
  4. METHYLPREDNISOLONE [Suspect]
     Dosage: PRE-MEDICATION
     Route: 042
  5. METHYLPREDNISOLONE [Suspect]
     Route: 042
  6. ACETAMINOPHEN [Concomitant]
     Indication: PREMEDICATION
  7. DIPHENHYDRAMINE HYDROCHLORIDE [Concomitant]
     Indication: PREMEDICATION
     Route: 042

REACTIONS (1)
  - TRANSPLANT REJECTION [None]
